FAERS Safety Report 17477674 (Version 2)
Quarter: 2020Q1

REPORT INFORMATION
  Report Type: Spontaneous
  Country: JP (occurrence: JP)
  Receive Date: 20200228
  Receipt Date: 20200306
  Transmission Date: 20200409
  Serious: Yes (Other)
  Sender: FDA-Public Use
  Company Number: NVSJ2020JP002649

PATIENT
  Age: 62 Year
  Sex: Female

DRUGS (2)
  1. TYKERB [Suspect]
     Active Substance: LAPATINIB DITOSYLATE
     Indication: BREAST CANCER RECURRENT
     Dosage: UNK
     Route: 048
  2. CAPECITABINE. [Concomitant]
     Active Substance: CAPECITABINE
     Indication: BREAST CANCER RECURRENT
     Dosage: UNK
     Route: 065

REACTIONS (3)
  - Metastases to skin [Unknown]
  - Malignant neoplasm progression [Unknown]
  - Haemorrhagic diathesis [Unknown]
